FAERS Safety Report 15328304 (Version 2)
Quarter: 2019Q1

REPORT INFORMATION
  Report Type: Report from Study
  Country: US (occurrence: US)
  Receive Date: 20180829
  Receipt Date: 20190108
  Transmission Date: 20190417
  Serious: No
  Sender: FDA-Public Use
  Company Number: PHEH2018US035735

PATIENT
  Age: 21 Year
  Sex: Female
  Weight: 54 kg

DRUGS (1)
  1. COSENTYX [Suspect]
     Active Substance: SECUKINUMAB
     Indication: PSORIASIS
     Dosage: 300 MG, QMO
     Route: 058
     Dates: start: 20180406

REACTIONS (2)
  - Abdominal discomfort [Recovered/Resolved]
  - Psoriasis [Not Recovered/Not Resolved]
